FAERS Safety Report 9344069 (Version 1)
Quarter: 2013Q2

REPORT INFORMATION
  Report Type: Spontaneous
  Country: FR (occurrence: FR)
  Receive Date: 20130612
  Receipt Date: 20130612
  Transmission Date: 20140414
  Serious: Yes (Life-Threatening, Hospitalization)
  Sender: FDA-Public Use
  Company Number: FR-BRISTOL-MYERS SQUIBB COMPANY-18999888

PATIENT
  Age: 78 Year
  Sex: Female

DRUGS (4)
  1. GLUCOPHAGE TABS 1000 MG [Suspect]
     Indication: TYPE 2 DIABETES MELLITUS
     Dosage: FILM COATED TABS
     Route: 048
     Dates: start: 2006, end: 20130428
  2. BI-PROFENID [Interacting]
     Indication: OSTEOARTHRITIS
     Route: 048
     Dates: start: 20130425, end: 20130428
  3. KARDEGIC [Concomitant]
  4. LYRICA [Concomitant]

REACTIONS (5)
  - Blood lactic acid [Recovering/Resolving]
  - Vomiting [Recovering/Resolving]
  - Hypovolaemic shock [Recovering/Resolving]
  - Renal failure acute [Recovering/Resolving]
  - Drug interaction [Unknown]
